FAERS Safety Report 10489737 (Version 2)
Quarter: 2014Q4

REPORT INFORMATION
  Report Type: Spontaneous
  Country: TR (occurrence: TR)
  Receive Date: 20141002
  Receipt Date: 20141209
  Transmission Date: 20150528
  Serious: Yes (Other)
  Sender: FDA-Public Use
  Company Number: TR-ELI_LILLY_AND_COMPANY-TR201409009046

PATIENT
  Age: 57 Year
  Sex: Female

DRUGS (8)
  1. HUMALOG [Suspect]
     Active Substance: INSULIN LISPRO
     Indication: TYPE 2 DIABETES MELLITUS
     Dosage: 14 U, BID
     Route: 065
     Dates: start: 20110106
  2. URIKOLIZ [Concomitant]
     Active Substance: ALLOPURINOL
  3. ASPIRIN. [Concomitant]
     Active Substance: ASPIRIN
  4. DETRUSITOL [Concomitant]
     Active Substance: TOLTERODINE TARTRATE
  5. HUMALOG [Suspect]
     Active Substance: INSULIN LISPRO
     Dosage: 16 U, EACH EVENING
     Route: 065
     Dates: start: 20110106
  6. HUMALOG MIX50/50 [Suspect]
     Active Substance: INSULIN LISPRO
     Dosage: UNK
     Route: 065
     Dates: start: 20110106
  7. HUMALOG MIX50/50 [Suspect]
     Active Substance: INSULIN LISPRO
     Indication: TYPE 2 DIABETES MELLITUS
     Dosage: UNK
     Route: 065
     Dates: start: 20110106
  8. LIPITOR [Concomitant]
     Active Substance: ATORVASTATIN CALCIUM

REACTIONS (5)
  - Blood glucose increased [Recovered/Resolved]
  - Polyuria [Unknown]
  - Vision blurred [Unknown]
  - Polydipsia [Unknown]
  - Drug ineffective [Recovered/Resolved]
